FAERS Safety Report 20906152 (Version 3)
Quarter: 2022Q3

REPORT INFORMATION
  Report Type: Spontaneous
  Country: US (occurrence: US)
  Receive Date: 20220602
  Receipt Date: 20220704
  Transmission Date: 20221026
  Serious: Yes (Life-Threatening, Hospitalization, Other)
  Sender: FDA-Public Use
  Company Number: US-BRISTOL-MYERS SQUIBB COMPANY-2022-048515

PATIENT
  Age: 51 Year
  Sex: Female
  Weight: 63.502 kg

DRUGS (1)
  1. ELIQUIS [Suspect]
     Active Substance: APIXABAN
     Indication: Pulmonary embolism
     Dosage: DOSE : TWO DOSES 4 PILLS;     FREQ : TWO TABLETS TWICE A DAY FOR SEVEN DAYS
     Route: 048

REACTIONS (3)
  - Haematemesis [Recovered/Resolved]
  - Haematuria [Unknown]
  - Blood pressure abnormal [Unknown]
